FAERS Safety Report 20953387 (Version 2)
Quarter: 2022Q2

REPORT INFORMATION
  Report Type: Report from Study
  Country: IT (occurrence: IT)
  Receive Date: 20220613
  Receipt Date: 20220621
  Transmission Date: 20220721
  Serious: Yes (Death)
  Sender: FDA-Public Use
  Company Number: IT-DSJP-DSU-2022-120428

PATIENT
  Age: 41 Year
  Sex: Female
  Weight: 96 kg

DRUGS (1)
  1. ENHERTU [Suspect]
     Active Substance: FAM-TRASTUZUMAB DERUXTECAN-NXKI
     Indication: HER2 positive breast cancer
     Dosage: 400 MG, ONCE EVERY 3 WK
     Route: 042
     Dates: start: 20220517, end: 20220517

REACTIONS (1)
  - Metastases to central nervous system [Fatal]
